FAERS Safety Report 8866387 (Version 2)
Quarter: 2012Q4

REPORT INFORMATION
  Report Type: 
  Country: IT (occurrence: IT)
  Receive Date: 20121025
  Receipt Date: 20121102
  Transmission Date: 20130627
  Serious: Yes (Death)
  Sender: FDA-Public Use
  Company Number: IT-CUBIST-2012S1000864

PATIENT
  Age: 82 Year
  Sex: Female

DRUGS (2)
  1. CUBICIN [Suspect]
     Indication: ENDOCARDITIS STAPHYLOCOCCAL
     Route: 042
  2. VANCOMYCIN [Concomitant]
     Indication: ENDOCARDITIS STAPHYLOCOCCAL
     Route: 065

REACTIONS (1)
  - Septic shock [Fatal]
